FAERS Safety Report 12608650 (Version 2)
Quarter: 2016Q4

REPORT INFORMATION
  Report Type: Spontaneous
  Country: US (occurrence: US)
  Receive Date: 20160729
  Receipt Date: 20161028
  Transmission Date: 20170207
  Serious: Yes (Hospitalization, Other)
  Sender: FDA-Public Use
  Company Number: US-PRINSTON PHARMACEUTICAL INC.-2016PRN00184

PATIENT
  Age: 67 Year
  Sex: Male
  Weight: 74.38 kg

DRUGS (16)
  1. CARVEDILOL. [Concomitant]
     Active Substance: CARVEDILOL
     Dosage: 3.125 G, 2X/DAY
     Route: 048
  2. FUROSEMIDE. [Concomitant]
     Active Substance: FUROSEMIDE
     Indication: OEDEMA
     Dosage: 20 MG, AS NEEDED
     Route: 048
  3. HYDROCHLOROTHIAZAIDE [Concomitant]
     Dosage: 12.5 MG, 1X/DAY
     Route: 048
  4. HYDROCHLOROTHIAZAIDE [Concomitant]
     Dosage: 25 UNK, UNK
     Route: 048
  5. SUCRALFATE. [Concomitant]
     Active Substance: SUCRALFATE
     Dosage: 1 G, 1X/DAY
     Route: 048
  6. PREGABALIN. [Concomitant]
     Active Substance: PREGABALIN
     Dosage: 100 MG, 1X/DAY
  7. LISINOPRIL. [Suspect]
     Active Substance: LISINOPRIL
     Indication: HYPERTENSION
  8. VALSARTAN. [Suspect]
     Active Substance: VALSARTAN
     Indication: HYPERTENSION
     Dosage: 80 MG, 2X/DAY
     Route: 048
     Dates: start: 201604, end: 201604
  9. VALSARTAN. [Suspect]
     Active Substance: VALSARTAN
     Dosage: 80 UNK, UNK
     Dates: start: 20160725
  10. NORCO [Concomitant]
     Active Substance: ACETAMINOPHEN\HYDROCODONE BITARTRATE
     Dosage: 1 TAB EVERY 4 TO 6 HOURS AS NEEDED
  11. LOSARTAN POTASSIUM. [Suspect]
     Active Substance: LOSARTAN POTASSIUM
     Indication: HYPERTENSION
     Dosage: 50 MG, UNK
     Dates: start: 20160722, end: 20160725
  12. HYDRALAZINE HYDROCHLORIDE. [Concomitant]
     Active Substance: HYDRALAZINE HYDROCHLORIDE
     Dosage: 25 MG, 1X/DAY
     Route: 048
  13. PROTONIX [Concomitant]
     Active Substance: PANTOPRAZOLE SODIUM
     Dosage: 40 MG, 1X/DAY
     Route: 048
  14. COREG [Concomitant]
     Active Substance: CARVEDILOL
     Dosage: 3.125 MG, 2X/DAY
  15. VALSARTAN. [Suspect]
     Active Substance: VALSARTAN
     Indication: HYPERTENSION
     Dosage: 40 MG, 2X/DAY
     Route: 048
     Dates: start: 201603, end: 201604
  16. ASPIRIN. [Concomitant]
     Active Substance: ASPIRIN
     Dosage: 325 MG, 1X/DAY

REACTIONS (17)
  - Adverse drug reaction [Unknown]
  - Pruritus generalised [Unknown]
  - Hyperhidrosis [Recovered/Resolved]
  - Diarrhoea [Unknown]
  - Hypoaesthesia [Unknown]
  - Chest pain [Unknown]
  - Dizziness [Unknown]
  - Dyspnoea [Unknown]
  - Product substitution issue [Recovered/Resolved]
  - Abdominal pain [Unknown]
  - Oedema [Unknown]
  - Drug ineffective [Recovered/Resolved]
  - Vein disorder [Unknown]
  - Chronic obstructive pulmonary disease [Unknown]
  - Blood pressure decreased [Unknown]
  - Sensory disturbance [Unknown]
  - Hypertensive crisis [Recovered/Resolved]

NARRATIVE: CASE EVENT DATE: 2016
